FAERS Safety Report 6028885-6 (Version None)
Quarter: 2008Q4

REPORT INFORMATION
  Report Type: 
  Country: None (occurrence: None)
  Receive Date: 20081231
  Receipt Date: 20081219
  Transmission Date: 20090506
  Serious: Yes (Death)
  Sender: FDA-Public Use
  Company Number: 20085836

PATIENT
  Sex: Male
  Weight: 31 kg

DRUGS (6)
  1. LIORESAL [Suspect]
     Indication: MUSCLE SPASTICITY
     Dosage: 900 MCG, DAILY, INTRATHECAL
     Route: 037
  2. CLONAZEPAM [Concomitant]
  3. TETRABENAZINE [Concomitant]
  4. PEG 3350 [Concomitant]
  5. PREVACID [Concomitant]
  6. IBUPROFEN TABLETS [Concomitant]

REACTIONS (1)
  - DROWNING [None]
